FAERS Safety Report 24945276 (Version 2)
Quarter: 2025Q1

REPORT INFORMATION
  Report Type: Spontaneous
  Country: IN (occurrence: IN)
  Receive Date: 20250209
  Receipt Date: 20250212
  Transmission Date: 20250409
  Serious: Yes (Death, Life-Threatening, Hospitalization, Other)
  Sender: SANOFI AVENTIS
  Company Number: IN-MLMSERVICE-20250128-PI363268-00095-1

PATIENT
  Age: 51 Year
  Sex: Male

DRUGS (16)
  1. LEFLUNOMIDE [Suspect]
     Active Substance: LEFLUNOMIDE
     Indication: Rheumatoid arthritis
     Dosage: 10 MG, QD
  2. LEFLUNOMIDE [Suspect]
     Active Substance: LEFLUNOMIDE
     Indication: Rheumatoid factor positive
  3. LEFLUNOMIDE [Suspect]
     Active Substance: LEFLUNOMIDE
     Indication: Anti-cyclic citrullinated peptide antibody positive
  4. PREDNISOLONE [Suspect]
     Active Substance: PREDNISOLONE
     Indication: Rheumatoid arthritis
     Dosage: 8 MG, BID
  5. PREDNISOLONE [Suspect]
     Active Substance: PREDNISOLONE
     Indication: Rheumatoid factor positive
  6. PREDNISOLONE [Suspect]
     Active Substance: PREDNISOLONE
     Indication: Anti-cyclic citrullinated peptide antibody positive
  7. HYDROXYCHLOROQUINE SULFATE [Suspect]
     Active Substance: HYDROXYCHLOROQUINE SULFATE
     Indication: Rheumatoid arthritis
     Dosage: 200 MG, QD
  8. HYDROXYCHLOROQUINE SULFATE [Suspect]
     Active Substance: HYDROXYCHLOROQUINE SULFATE
     Indication: Rheumatoid factor positive
     Dosage: 300 MG, QD
  9. HYDROXYCHLOROQUINE SULFATE [Suspect]
     Active Substance: HYDROXYCHLOROQUINE SULFATE
     Indication: Anti-cyclic citrullinated peptide antibody positive
  10. AZITHROMYCIN [Suspect]
     Active Substance: AZITHROMYCIN
     Indication: Drug reaction with eosinophilia and systemic symptoms
     Dosage: 500 MG, QD
  11. SULFASALAZINE [Suspect]
     Active Substance: SULFASALAZINE
     Indication: Rheumatoid arthritis
     Dosage: 500 MG, QD
  12. SULFASALAZINE [Suspect]
     Active Substance: SULFASALAZINE
     Indication: Rheumatoid factor positive
  13. SULFASALAZINE [Suspect]
     Active Substance: SULFASALAZINE
     Indication: Anti-cyclic citrullinated peptide antibody positive
  14. METHOTREXATE [Suspect]
     Active Substance: METHOTREXATE
     Indication: Rheumatoid arthritis
     Dosage: 8 MG, QW
  15. METHOTREXATE [Suspect]
     Active Substance: METHOTREXATE
     Indication: Rheumatoid factor positive
  16. METHOTREXATE [Suspect]
     Active Substance: METHOTREXATE
     Indication: Anti-cyclic citrullinated peptide antibody positive

REACTIONS (22)
  - Drug reaction with eosinophilia and systemic symptoms [Fatal]
  - Pyrexia [Fatal]
  - Chills [Fatal]
  - Rash pruritic [Fatal]
  - Diarrhoea [Fatal]
  - Typhoid fever [Fatal]
  - Multiple organ dysfunction syndrome [Fatal]
  - Neutropenic sepsis [Fatal]
  - Toxic epidermal necrolysis [Fatal]
  - Rash [Fatal]
  - Jaundice [Fatal]
  - Oedema peripheral [Fatal]
  - Skin hyperpigmentation [Fatal]
  - Skin exfoliation [Fatal]
  - Scab [Fatal]
  - Skin fissures [Fatal]
  - Blister [Fatal]
  - Skin weeping [Fatal]
  - Skin erosion [Fatal]
  - Oral mucosal exfoliation [Fatal]
  - Lymphocytic infiltration [Fatal]
  - Acute kidney injury [Unknown]
